FAERS Safety Report 13505420 (Version 1)
Quarter: 2017Q2

REPORT INFORMATION
  Report Type: Spontaneous
  Country: US (occurrence: US)
  Receive Date: 20170502
  Receipt Date: 20170502
  Transmission Date: 20170830
  Serious: No
  Sender: FDA-Public Use
  Company Number: US-ACTELION-A-US2014-103152

PATIENT
  Age: 55 Year
  Sex: Female

DRUGS (2)
  1. VALCHLOR [Suspect]
     Active Substance: MECHLORETHAMINE
     Indication: MYCOSIS FUNGOIDES
     Dosage: 0.016 %, UNK
     Route: 061
     Dates: start: 20140619
  2. VITAMIN E [Concomitant]
     Active Substance: .ALPHA.-TOCOPHEROL
     Dosage: UNK
     Dates: start: 20140702

REACTIONS (6)
  - Skin lesion [Unknown]
  - Dizziness [Unknown]
  - Hyperhidrosis [Unknown]
  - Eye irritation [Recovered/Resolved]
  - Lacrimation increased [Unknown]
  - Feeling hot [Not Recovered/Not Resolved]
